FAERS Safety Report 15940964 (Version 3)
Quarter: 2019Q3

REPORT INFORMATION
  Report Type: Spontaneous
  Country: US (occurrence: US)
  Receive Date: 20190208
  Receipt Date: 20190729
  Transmission Date: 20191004
  Serious: Yes (Hospitalization, Other)
  Sender: FDA-Public Use
  Company Number: US-ASTRAZENECA-2018SF65629

PATIENT
  Age: 21260 Day
  Sex: Female

DRUGS (53)
  1. METFORMIN [Concomitant]
     Active Substance: METFORMIN HYDROCHLORIDE
  2. TRAMADOL. [Concomitant]
     Active Substance: TRAMADOL
  3. LEVEMIR [Concomitant]
     Active Substance: INSULIN DETEMIR
  4. NAPROXEN. [Concomitant]
     Active Substance: NAPROXEN
  5. PRAMIPEXOLE. [Concomitant]
     Active Substance: PRAMIPEXOLE
  6. FOLIC ACID. [Concomitant]
     Active Substance: FOLIC ACID
  7. PROTONIX [Suspect]
     Active Substance: PANTOPRAZOLE SODIUM
     Indication: GASTROOESOPHAGEAL REFLUX DISEASE
     Route: 065
     Dates: start: 20131127
  8. TIZANIDINE. [Concomitant]
     Active Substance: TIZANIDINE
  9. MONTELUKAST [Concomitant]
     Active Substance: MONTELUKAST SODIUM
  10. CYANOCOBALAMIN. [Concomitant]
     Active Substance: CYANOCOBALAMIN
  11. PROTONIX [Suspect]
     Active Substance: PANTOPRAZOLE SODIUM
     Indication: GASTROOESOPHAGEAL REFLUX DISEASE
     Dosage: GENERIC
     Route: 048
  12. ACETAZOLAMIDE. [Concomitant]
     Active Substance: ACETAZOLAMIDE
  13. LEVOTHYROXINE. [Concomitant]
     Active Substance: LEVOTHYROXINE
  14. LOSARTAN. [Concomitant]
     Active Substance: LOSARTAN
  15. ROPINIROLE. [Concomitant]
     Active Substance: ROPINIROLE
  16. METOCLOPRAMIDE. [Concomitant]
     Active Substance: METOCLOPRAMIDE
  17. ZONISAMIDE. [Concomitant]
     Active Substance: ZONISAMIDE
  18. MONTELUKAST [Concomitant]
     Active Substance: MONTELUKAST SODIUM
  19. FAMOTIDINE. [Concomitant]
     Active Substance: FAMOTIDINE
  20. NEXIUM [Suspect]
     Active Substance: ESOMEPRAZOLE MAGNESIUM
     Route: 048
  21. PROTONIX [Suspect]
     Active Substance: PANTOPRAZOLE SODIUM
     Indication: GASTROOESOPHAGEAL REFLUX DISEASE
     Route: 065
     Dates: start: 2010
  22. CARVEDILOL. [Concomitant]
     Active Substance: CARVEDILOL
  23. CITALOPRAM [Concomitant]
     Active Substance: CITALOPRAM HYDROBROMIDE
  24. TAMIFLU [Concomitant]
     Active Substance: OSELTAMIVIR PHOSPHATE
  25. SULFAMETHOXAZOLE/TMP [Concomitant]
     Active Substance: SULFAMETHOXAZOLE\TRIMETHOPRIM
  26. ISOSORBIDE. [Concomitant]
     Active Substance: ISOSORBIDE
  27. METOCLOPRAMIDE. [Concomitant]
     Active Substance: METOCLOPRAMIDE
  28. MECLIZINE [Concomitant]
     Active Substance: MECLIZINE HYDROCHLORIDE
  29. PROTONIX [Suspect]
     Active Substance: PANTOPRAZOLE SODIUM
     Indication: GASTROOESOPHAGEAL REFLUX DISEASE
     Route: 065
     Dates: start: 2014
  30. ZONISAMIDE. [Concomitant]
     Active Substance: ZONISAMIDE
  31. HYDROCODONE-APAP [Concomitant]
     Active Substance: ACETAMINOPHEN\HYDROCODONE
  32. FLUCONAZOLE. [Concomitant]
     Active Substance: FLUCONAZOLE
  33. ATORVASTATIN [Concomitant]
     Active Substance: ATORVASTATIN
  34. AMOXICILLIN. [Concomitant]
     Active Substance: AMOXICILLIN
  35. NEXIUM 24HR [Suspect]
     Active Substance: ESOMEPRAZOLE MAGNESIUM
     Indication: DYSPEPSIA
     Route: 048
     Dates: start: 2005
  36. PRILOSEC OTC [Suspect]
     Active Substance: OMEPRAZOLE MAGNESIUM
     Indication: DYSPEPSIA
     Route: 048
     Dates: start: 2003
  37. ADVAIR HFA [Concomitant]
     Active Substance: FLUTICASONE PROPIONATE\SALMETEROL XINAFOATE
  38. ATORVASTATIN [Concomitant]
     Active Substance: ATORVASTATIN
  39. OXYBUTYNIN. [Concomitant]
     Active Substance: OXYBUTYNIN CHLORIDE
  40. GABAPENTIN. [Concomitant]
     Active Substance: GABAPENTIN
  41. PRAMIPEXOLE. [Concomitant]
     Active Substance: PRAMIPEXOLE
  42. METFORMIN [Concomitant]
     Active Substance: METFORMIN HYDROCHLORIDE
  43. NAPROXEN. [Concomitant]
     Active Substance: NAPROXEN
  44. OXYBUTYNIN. [Concomitant]
     Active Substance: OXYBUTYNIN CHLORIDE
  45. PRILOSEC [Suspect]
     Active Substance: OMEPRAZOLE MAGNESIUM
     Route: 048
     Dates: start: 20131127
  46. XARELTO [Concomitant]
     Active Substance: RIVAROXABAN
  47. VITAMIN D [Concomitant]
     Active Substance: VITAMIN D NOS
  48. FLUTICASONE. [Concomitant]
     Active Substance: FLUTICASONE
  49. NITROGLYCERIN. [Concomitant]
     Active Substance: NITROGLYCERIN
  50. NEXIUM [Suspect]
     Active Substance: ESOMEPRAZOLE MAGNESIUM
     Route: 048
     Dates: start: 20131127
  51. PRILOSEC [Suspect]
     Active Substance: OMEPRAZOLE MAGNESIUM
     Route: 048
  52. METOPROLOL. [Concomitant]
     Active Substance: METOPROLOL
  53. ELIQUIS [Concomitant]
     Active Substance: APIXABAN

REACTIONS (5)
  - Renal injury [Unknown]
  - Acute kidney injury [Unknown]
  - Rebound acid hypersecretion [Unknown]
  - Chronic kidney disease [Unknown]
  - Renal failure [Unknown]

NARRATIVE: CASE EVENT DATE: 20160510
